FAERS Safety Report 13031172 (Version 3)
Quarter: 2017Q1

REPORT INFORMATION
  Report Type: Report from Study
  Country: US (occurrence: US)
  Receive Date: 20161215
  Receipt Date: 20170103
  Transmission Date: 20170428
  Serious: Yes (Other)
  Sender: FDA-Public Use
  Company Number: US-ARIAD-2016US007411

PATIENT
  Sex: Male

DRUGS (1)
  1. ICLUSIG [Suspect]
     Active Substance: PONATINIB
     Indication: CHRONIC MYELOID LEUKAEMIA
     Dosage: 30 MG, QD
     Route: 048
     Dates: start: 20150126

REACTIONS (14)
  - Oedema peripheral [Unknown]
  - Arthralgia [Recovered/Resolved]
  - Back pain [Recovered/Resolved]
  - Wheelchair user [Not Recovered/Not Resolved]
  - Neuropathy peripheral [Not Recovered/Not Resolved]
  - Weight increased [Unknown]
  - Blood pressure abnormal [Unknown]
  - Burning sensation [Recovered/Resolved]
  - Vision blurred [Unknown]
  - Cataract [Unknown]
  - Nocturia [Unknown]
  - Headache [Recovered/Resolved]
  - Neoplasm progression [Unknown]
  - Arcus lipoides [Unknown]
